FAERS Safety Report 6061838-0 (Version None)
Quarter: 2009Q1

REPORT INFORMATION
  Report Type: 
  Country: None (occurrence: None)
  Receive Date: 20090202
  Receipt Date: 20090129
  Transmission Date: 20090719
  Serious: Yes (Death)
  Sender: FDA-Public Use
  Company Number: US-GENENTECH-272656

PATIENT
  Sex: Male
  Weight: 78.2 kg

DRUGS (20)
  1. OMALIZUMAB [Suspect]
     Indication: ASTHMA
     Dosage: UNK MG, Q2W
     Route: 058
     Dates: start: 20060817
  2. OMALIZUMAB [Suspect]
     Dosage: 400 MG, Q2W
     Route: 058
     Dates: end: 20080310
  3. NASALIDE [Concomitant]
     Indication: DRUG USE FOR UNKNOWN INDICATION
  4. XOPENEX [Concomitant]
     Indication: DRUG USE FOR UNKNOWN INDICATION
  5. SPIRIVA [Concomitant]
     Indication: DRUG USE FOR UNKNOWN INDICATION
  6. SEREVENT [Concomitant]
     Indication: DRUG USE FOR UNKNOWN INDICATION
  7. SINGULAIR [Concomitant]
     Indication: DRUG USE FOR UNKNOWN INDICATION
  8. LISINOPRIL [Concomitant]
     Indication: DRUG USE FOR UNKNOWN INDICATION
     Dosage: 1 TABLET, UNK
  9. TOPIRAMATE [Concomitant]
     Indication: DRUG USE FOR UNKNOWN INDICATION
  10. OMEPRAZOLE [Concomitant]
     Indication: DRUG USE FOR UNKNOWN INDICATION
  11. ACETAMINOPHEN AND HYDROCODONE BITARTRATE [Concomitant]
     Indication: DRUG USE FOR UNKNOWN INDICATION
  12. TIOTROPIUM [Concomitant]
     Indication: DRUG USE FOR UNKNOWN INDICATION
  13. DILTIAZEM [Concomitant]
     Indication: DRUG USE FOR UNKNOWN INDICATION
  14. TESTOSTERONE CYPIONATE [Concomitant]
     Indication: DRUG USE FOR UNKNOWN INDICATION
  15. MOMETASONE FUROATE [Concomitant]
     Indication: DRUG USE FOR UNKNOWN INDICATION
  16. AZITHROMYCIN [Concomitant]
     Indication: DRUG USE FOR UNKNOWN INDICATION
  17. ALBUTEROL SULATE [Concomitant]
     Indication: DRUG USE FOR UNKNOWN INDICATION
  18. MONTELUKAST SODIUM [Concomitant]
     Indication: DRUG USE FOR UNKNOWN INDICATION
  19. CALCITONIN [Concomitant]
     Indication: DRUG USE FOR UNKNOWN INDICATION
  20. PREDNISONE [Concomitant]
     Indication: DRUG USE FOR UNKNOWN INDICATION

REACTIONS (1)
  - DEATH [None]
